FAERS Safety Report 4829399-9 (Version None)
Quarter: 2005Q4

REPORT INFORMATION
  Report Type: 
  Country: None (occurrence: None)
  Receive Date: 20051116
  Receipt Date: 20051109
  Transmission Date: 20060501
  Serious: Yes (Life-Threatening, Hospitalization)
  Sender: FDA-Public Use
  Company Number: PHBS2005US16519

PATIENT
  Age: 10 Year
  Sex: Female
  Weight: 29 kg

DRUGS (2)
  1. CARBAMAZEPINE [Suspect]
     Indication: CONVULSION
     Dosage: 100 MG, BID
     Route: 065
  2. CARBAMAZEPINE [Suspect]
     Dosage: 150 MG, BID
     Route: 065

REACTIONS (49)
  - ACIDOSIS [None]
  - ACUTE RESPIRATORY DISTRESS SYNDROME [None]
  - ALANINE AMINOTRANSFERASE INCREASED [None]
  - ANAEMIA [None]
  - ANXIETY [None]
  - ASPARTATE AMINOTRANSFERASE INCREASED [None]
  - BLISTER [None]
  - BLOOD PRESSURE DECREASED [None]
  - CANDIDA SEROLOGY POSITIVE [None]
  - CARDIAC FAILURE [None]
  - CORNEAL EXFOLIATION [None]
  - DERMATITIS BULLOUS [None]
  - DYSURIA [None]
  - GASTROINTESTINAL HAEMORRHAGE [None]
  - HAEMATOCRIT DECREASED [None]
  - HAEMOGLOBIN DECREASED [None]
  - HEART RATE INCREASED [None]
  - HEPATIC FUNCTION ABNORMAL [None]
  - ILEUS [None]
  - INTUBATION [None]
  - LUNG CONSOLIDATION [None]
  - MOUTH ULCERATION [None]
  - MULTI-ORGAN FAILURE [None]
  - NAIL DISORDER [None]
  - NEUTROPENIA [None]
  - NIKOLSKY'S SIGN [None]
  - ORAL MUCOSAL EXFOLIATION [None]
  - ORAL PAIN [None]
  - PANCREATITIS [None]
  - PANCYTOPENIA [None]
  - PETECHIAE [None]
  - PHOTOPHOBIA [None]
  - PIGMENTATION DISORDER [None]
  - PROTHROMBIN TIME PROLONGED [None]
  - PULMONARY HYPERTENSION [None]
  - PYREXIA [None]
  - RASH MORBILLIFORM [None]
  - RESPIRATORY FAILURE [None]
  - RESPIRATORY RATE INCREASED [None]
  - RESPIRATORY TRACT HAEMORRHAGE [None]
  - SEPSIS [None]
  - SKIN EXFOLIATION [None]
  - STAPHYLOCOCCAL BACTERAEMIA [None]
  - STENOTROPHOMONAS INFECTION [None]
  - SWOLLEN TONGUE [None]
  - THROMBOCYTOPENIA [None]
  - TOXIC EPIDERMAL NECROLYSIS [None]
  - VOMITING [None]
  - WHITE BLOOD CELL COUNT DECREASED [None]
